FAERS Safety Report 5317144-2 (Version None)
Quarter: 2007Q2

REPORT INFORMATION
  Report Type: 
  Country: None (occurrence: None)
  Receive Date: 20070504
  Receipt Date: 20070425
  Transmission Date: 20071010
  Serious: Yes (Other)
  Sender: FDA-Public Use
  Company Number: GB-PFIZER INC-2006086292

PATIENT
  Age: 38 Year
  Sex: Male

DRUGS (10)
  1. ATORVASTATIN CALCIUM [Suspect]
     Indication: HYPERLIPIDAEMIA
     Dosage: TEXT:UNKNOWN-FREQ:UNKNOWN
     Route: 065
  2. DOXAZOSIN MESYLATE [Suspect]
     Indication: DRUG USE FOR UNKNOWN INDICATION
     Dosage: TEXT:UNKNOWN-FREQ:UNKNOWN
     Route: 065
  3. ASPIRIN [Suspect]
     Indication: DRUG USE FOR UNKNOWN INDICATION
     Dosage: TEXT:UNKNOWN-FREQ:UNKNOWN
     Route: 065
  4. ATENOLOL [Suspect]
     Indication: HYPERTENSION
     Dosage: TEXT:UNKNOWN-FREQ:UNKNOWN
     Route: 065
  5. CELLCEPT [Suspect]
     Indication: RENAL TRANSPLANT
     Route: 048
     Dates: start: 20020615, end: 20060315
  6. ISONIAZID [Suspect]
     Indication: DRUG USE FOR UNKNOWN INDICATION
     Route: 065
  7. NEORAL [Concomitant]
     Indication: RENAL TRANSPLANT
     Route: 065
     Dates: start: 20020101
  8. LAMIVUDINE [Concomitant]
     Indication: HEPATITIS B
     Route: 065
  9. PERINDOPRIL [Concomitant]
     Indication: HYPERTENSION
     Route: 065
  10. PYRIDOXINE HCL [Concomitant]
     Route: 065

REACTIONS (1)
  - SPERMATOZOA PROGRESSIVE MOTILITY ABNORMAL [None]
